FAERS Safety Report 10198767 (Version 1)
Quarter: 2014Q2

REPORT INFORMATION
  Report Type: Spontaneous
  Country: US (occurrence: US)
  Receive Date: 20140527
  Receipt Date: 20140527
  Transmission Date: 20141212
  Serious: No
  Sender: FDA-Public Use
  Company Number: US-NOVEN-13US007477

PATIENT
  Age: 57 Year
  Sex: Male

DRUGS (3)
  1. DAYTRANA [Suspect]
     Indication: ATTENTION DEFICIT/HYPERACTIVITY DISORDER
     Dosage: 20 MG, UNKNOWN
     Route: 062
     Dates: start: 201307, end: 201307
  2. DAYTRANA [Suspect]
     Dosage: 30 MG, UNKNOWN
     Route: 062
     Dates: start: 201307, end: 201307
  3. DAYTRANA [Suspect]
     Dosage: 30 MG, 1/2 PATCH (15 MG)
     Route: 062
     Dates: start: 20130727, end: 20130805

REACTIONS (9)
  - Pruritus [Recovering/Resolving]
  - Agitation [Recovered/Resolved]
  - Rash generalised [Not Recovered/Not Resolved]
  - Application site swelling [Recovering/Resolving]
  - Off label use [Recovered/Resolved]
  - Drug prescribing error [Recovered/Resolved]
  - Drug effect increased [Recovered/Resolved]
  - Wrong technique in drug usage process [Recovered/Resolved]
  - Drug administered at inappropriate site [None]
